FAERS Safety Report 13647998 (Version 4)
Quarter: 2018Q3

REPORT INFORMATION
  Report Type: Spontaneous
  Country: US (occurrence: US)
  Receive Date: 20170613
  Receipt Date: 20180912
  Transmission Date: 20181010
  Serious: Yes (Hospitalization, Other)
  Sender: FDA-Public Use
  Company Number: US-AMGEN-USASP2017087088

PATIENT
  Age: 68 Year
  Sex: Female

DRUGS (1)
  1. PROLIA [Suspect]
     Active Substance: DENOSUMAB
     Indication: OSTEOPOROSIS
     Dosage: UNK
     Route: 065
     Dates: start: 201609, end: 201703

REACTIONS (4)
  - Intentional dose omission [Unknown]
  - Bone density decreased [Unknown]
  - Pain [Unknown]
  - Intestinal scarring [Unknown]

NARRATIVE: CASE EVENT DATE: 201611
